FAERS Safety Report 4444090-9 (Version None)
Quarter: 2004Q3

REPORT INFORMATION
  Report Type: 
  Country: None (occurrence: None)
  Receive Date: 20040729
  Receipt Date: 20040413
  Transmission Date: 20050211
  Serious: Yes (Other)
  Sender: FDA-Public Use
  Company Number: US-JNJFOC-20031200253

PATIENT
  Age: 46 Year
  Sex: Female

DRUGS (12)
  1. RISPERDAL [Suspect]
     Indication: SCHIZOPHRENIA
     Dosage: 3 MG, 1 IN 1 DAY, ORAL
     Route: 048
     Dates: start: 20030101, end: 20030901
  2. CALCIUM D (CALCIUM WITH VITAMIN D) [Concomitant]
  3. KEPRA (LEVETIRACETAM) [Concomitant]
  4. ZONEGRAN [Concomitant]
  5. SYNTHROID [Concomitant]
  6. ALLEGRA [Concomitant]
  7. PROTONIX [Concomitant]
  8. ATIVAN [Concomitant]
  9. ADVAIR DISKUS [Concomitant]
  10. KETOCONAZOLE [Concomitant]
  11. DESONIDE [Concomitant]
  12. CLOBETASOL (CLOBETASOL) [Concomitant]

REACTIONS (2)
  - RESTLESSNESS [None]
  - STATUS EPILEPTICUS [None]
